FAERS Safety Report 4971974-5 (Version None)
Quarter: 2006Q2

REPORT INFORMATION
  Report Type: 
  Country: None (occurrence: None)
  Receive Date: 20060413
  Receipt Date: 20020710
  Transmission Date: 20061013
  Serious: Yes (Hospitalization, Disabling)
  Sender: FDA-Public Use
  Company Number: PL-ROCHE-316981

PATIENT
  Age: 35 Year
  Sex: Male
  Weight: 64.2 kg

DRUGS (3)
  1. PEG-INTERFERON ALFA 2A (RO 25-8310) [Suspect]
     Indication: HEPATITIS B
     Route: 058
     Dates: start: 20020328, end: 20020705
  2. PLACEBO [Suspect]
     Indication: HEPATITIS B
     Route: 048
     Dates: start: 20020328, end: 20020725
  3. ADIURETIN SD [Concomitant]
     Dates: start: 19740615

REACTIONS (4)
  - ALANINE AMINOTRANSFERASE INCREASED [None]
  - ASPARTATE AMINOTRANSFERASE INCREASED [None]
  - DEAFNESS [None]
  - GAMMA-GLUTAMYLTRANSFERASE INCREASED [None]
